FAERS Safety Report 4922466-0 (Version None)
Quarter: 2006Q1

REPORT INFORMATION
  Report Type: 
  Country: None (occurrence: None)
  Receive Date: 20060224
  Receipt Date: 20050602
  Transmission Date: 20060701
  Serious: Yes (Hospitalization, Disabling)
  Sender: FDA-Public Use
  Company Number: US-MERCK-0506USA00726

PATIENT
  Age: 52 Year
  Sex: Female
  Weight: 102 kg

DRUGS (1)
  1. VIOXX [Suspect]
     Indication: INFLAMMATION
     Route: 048
     Dates: start: 20030918, end: 20040809

REACTIONS (6)
  - ARTHRALGIA [None]
  - BLOOD PRESSURE ABNORMAL [None]
  - DEEP VEIN THROMBOSIS [None]
  - INJURY [None]
  - PAIN IN EXTREMITY [None]
  - PANIC ATTACK [None]
